FAERS Safety Report 8991258 (Version 1)
Quarter: 2012Q4

REPORT INFORMATION
  Report Type: Report from Study
  Country: CA (occurrence: CA)
  Receive Date: 20121231
  Receipt Date: 20121231
  Transmission Date: 20130627
  Serious: Yes (Other)
  Sender: FDA-Public Use
  Company Number: CA-ROCHE-1167361

PATIENT
  Sex: Female
  Weight: 84 kg

DRUGS (4)
  1. OMALIZUMAB [Suspect]
     Indication: ASTHMA
     Route: 065
     Dates: start: 20080129
  2. PREDNISONE [Concomitant]
     Route: 065
  3. PREDNISONE [Concomitant]
     Route: 065
  4. CORTISONE [Concomitant]
     Route: 065

REACTIONS (7)
  - Sleep apnoea syndrome [Unknown]
  - Pain in extremity [Recovered/Resolved]
  - Sputum discoloured [Unknown]
  - Sinusitis [Unknown]
  - Asthma [Unknown]
  - Headache [Unknown]
  - Cough [Unknown]
